FAERS Safety Report 4434926-X (Version None)
Quarter: 2004Q3

REPORT INFORMATION
  Report Type: 
  Country: None (occurrence: None)
  Receive Date: 20040726
  Receipt Date: 20040312
  Transmission Date: 20050211
  Serious: No
  Sender: FDA-Public Use
  Company Number: USA040260410

PATIENT
  Age: 86 Year
  Sex: Female
  Weight: 40 kg

DRUGS (6)
  1. FORTEO [Suspect]
     Indication: OSTEOPOROSIS
     Dosage: 20 UG/L DAY
  2. DETROL (TOLTERIDONE L-TARTRATE) [Concomitant]
  3. COZAAR [Concomitant]
  4. VITAMIN E [Concomitant]
  5. MULTIVITAMIN [Concomitant]
  6. OCCUVITE [Concomitant]

REACTIONS (3)
  - INJECTION SITE HAEMORRHAGE [None]
  - INJECTION SITE PAIN [None]
  - NERVOUSNESS [None]
